FAERS Safety Report 8424365-9 (Version None)
Quarter: 2012Q2

REPORT INFORMATION
  Report Type: 
  Country: None (occurrence: None)
  Receive Date: 20120608
  Receipt Date: 20110914
  Transmission Date: 20120825
  Serious: No
  Sender: FDA-Public Use
  Company Number: US-ASTRAZENECA-2011SE55245

PATIENT
  Age: 67 Year
  Sex: Female
  Weight: 72.6 kg

DRUGS (6)
  1. IBUPROFEN [Concomitant]
  2. PULMICORT FLEXHALER [Suspect]
     Indication: ASTHMA
     Dosage: 1 PUFF TWO TIMES A DAY
     Route: 055
  3. CALCIUM CARBONATE [Concomitant]
  4. CALCIUM [Concomitant]
  5. AMITRIPTLINE HYDROCHLORIDE TAB [Concomitant]
     Indication: FIBROMYALGIA
  6. VITAMIN TAB [Concomitant]

REACTIONS (2)
  - COUGH [None]
  - DRUG DOSE OMISSION [None]
